FAERS Safety Report 18604962 (Version 1)
Quarter: 2020Q4

REPORT INFORMATION
  Report Type: Spontaneous
  Country: US (occurrence: US)
  Receive Date: 20201211
  Receipt Date: 20201211
  Transmission Date: 20210114
  Serious: No
  Sender: FDA-Public Use
  Company Number: None

PATIENT
  Age: 51 Year
  Sex: Female

DRUGS (1)
  1. MOXIFLOXACIN OPHTHALMIC SOLUTION, USP 0.5% STERILE 3 ML [Suspect]
     Active Substance: MOXIFLOXACIN
     Indication: EYE ULCER
     Dosage: ?          QUANTITY:1 DROP(S);OTHER FREQUENCY:EVERY HOUR;?
     Route: 047
     Dates: start: 20201209, end: 20201210

REACTIONS (3)
  - Eye pain [None]
  - Condition aggravated [None]
  - Visual impairment [None]

NARRATIVE: CASE EVENT DATE: 20201209
